FAERS Safety Report 6753194-7 (Version None)
Quarter: 2010Q2

REPORT INFORMATION
  Report Type: 
  Country: None (occurrence: None)
  Receive Date: 20100603
  Receipt Date: 20100524
  Transmission Date: 20101027
  Serious: Yes (Death, Life-Threatening)
  Sender: FDA-Public Use
  Company Number: JP-PFIZER INC-2010042169

PATIENT
  Age: 82 Year
  Sex: Female
  Weight: 56.5 kg

DRUGS (15)
  1. SUNITINIB MALATE [Suspect]
     Indication: RENAL CELL CARCINOMA
     Dosage: 25 MG, 1X/DAY
     Route: 048
     Dates: start: 20090827, end: 20091127
  2. NORVASC [Concomitant]
     Route: 048
     Dates: start: 20091001, end: 20091217
  3. MEDICON [Concomitant]
     Route: 048
     Dates: end: 20091217
  4. PRIMPERAN TAB [Concomitant]
     Route: 048
     Dates: end: 20091217
  5. ASPIRIN [Concomitant]
     Route: 048
     Dates: end: 20091217
  6. MUCOSTA [Concomitant]
     Route: 048
     Dates: end: 20091217
  7. PLAVIX [Concomitant]
     Route: 048
     Dates: end: 20091217
  8. SELTOUCH [Concomitant]
     Dates: start: 20090827, end: 20091217
  9. RINDERON [Concomitant]
     Route: 048
     Dates: start: 20090903, end: 20091210
  10. DEXAMETHASONE [Concomitant]
     Dates: start: 20090903, end: 20091217
  11. DIART [Concomitant]
     Route: 048
     Dates: start: 20090916, end: 20091217
  12. ALDACTONE [Concomitant]
     Route: 048
     Dates: start: 20090925, end: 20091217
  13. AFTACH [Concomitant]
     Dates: start: 20090925, end: 20091217
  14. FAMOTIDINE [Concomitant]
     Route: 048
     Dates: start: 20091119, end: 20091217
  15. ITRIZOLE [Concomitant]
     Route: 048
     Dates: start: 20091210, end: 20091217

REACTIONS (3)
  - DISEASE PROGRESSION [None]
  - PLATELET COUNT DECREASED [None]
  - RENAL CELL CARCINOMA [None]
